FAERS Safety Report 6864002-8 (Version None)
Quarter: 2010Q3

REPORT INFORMATION
  Report Type: 
  Country: None (occurrence: None)
  Receive Date: 20100721
  Receipt Date: 20080313
  Transmission Date: 20110219
  Serious: No
  Sender: FDA-Public Use
  Company Number: US-PFIZER INC-2008024110

PATIENT
  Sex: Male
  Weight: 90 kg

DRUGS (6)
  1. CHANTIX [Suspect]
     Indication: SMOKING CESSATION THERAPY
     Dates: start: 20080207, end: 20080301
  2. VALSARTAN [Concomitant]
     Indication: BLOOD PRESSURE ABNORMAL
  3. ALL OTHER THERAPEUTIC PRODUCTS [Concomitant]
  4. DIAZEPAM [Concomitant]
  5. ALBUTEROL [Concomitant]
  6. ADVAIR DISKUS 100/50 [Concomitant]

REACTIONS (7)
  - DYSPNOEA [None]
  - HEADACHE [None]
  - OROPHARYNGEAL PAIN [None]
  - RASH [None]
  - SLEEP DISORDER [None]
  - SLEEP TALKING [None]
  - WHEEZING [None]
